FAERS Safety Report 8516498-3 (Version None)
Quarter: 2012Q3

REPORT INFORMATION
  Report Type: 
  Country: None (occurrence: None)
  Receive Date: 20120718
  Receipt Date: 20120716
  Transmission Date: 20120928
  Serious: No
  Sender: FDA-Public Use
  Company Number: US-PFIZER INC-2012171643

PATIENT
  Sex: Male
  Weight: 104 kg

DRUGS (2)
  1. SIMVASTATIN [Concomitant]
     Dosage: UNK
  2. ZOLOFT [Suspect]
     Indication: DEPRESSION
     Dosage: TWO TABLETS OF 100MG, 1X/DAY
     Route: 048
     Dates: start: 20100301, end: 20120101

REACTIONS (2)
  - WITHDRAWAL SYNDROME [None]
  - DIZZINESS [None]
